FAERS Safety Report 25030452 (Version 1)
Quarter: 2025Q1

REPORT INFORMATION
  Report Type: Spontaneous
  Country: GB (occurrence: GB)
  Receive Date: 20250303
  Receipt Date: 20250303
  Transmission Date: 20250408
  Serious: Yes (Other)
  Sender: BRISTOL-MYERS SQUIBB COMPANY
  Company Number: None

PATIENT
  Sex: Male

DRUGS (3)
  1. EFAVIRENZ [Interacting]
     Active Substance: EFAVIRENZ
     Indication: Product used for unknown indication
  2. EMTRICITABINE [Interacting]
     Active Substance: EMTRICITABINE
     Indication: Product used for unknown indication
  3. TENOFOVIR [Concomitant]
     Active Substance: TENOFOVIR
     Indication: Product used for unknown indication

REACTIONS (2)
  - Drug interaction [Unknown]
  - Nervous system disorder [Unknown]
